FAERS Safety Report 10959008 (Version 1)
Quarter: 2015Q1

REPORT INFORMATION
  Report Type: Spontaneous
  Country: US (occurrence: US)
  Receive Date: 20150327
  Receipt Date: 20150327
  Transmission Date: 20150721
  Serious: Yes (Death)
  Sender: FDA-Public Use
  Company Number: US-CIPLA LTD.-2015US02341

PATIENT

DRUGS (6)
  1. AMLODIPINE [Suspect]
     Active Substance: AMLODIPINE BESYLATE
  2. RISPERIDONE. [Suspect]
     Active Substance: RISPERIDONE
  3. OMEPRAZOLE. [Suspect]
     Active Substance: OMEPRAZOLE
  4. LISINOPRIL. [Suspect]
     Active Substance: LISINOPRIL
  5. QUETIAPINE [Suspect]
     Active Substance: QUETIAPINE
  6. LAMOTRIGINE. [Suspect]
     Active Substance: LAMOTRIGINE

REACTIONS (1)
  - Completed suicide [Fatal]
